FAERS Safety Report 19304942 (Version 1)
Quarter: 2021Q2

REPORT INFORMATION
  Report Type: Spontaneous
  Country: KR (occurrence: KR)
  Receive Date: 20210525
  Receipt Date: 20210525
  Transmission Date: 20210717
  Serious: Yes (Hospitalization)
  Sender: FDA-Public Use
  Company Number: KR-GLAXOSMITHKLINE-KR2021APC107464

PATIENT
  Age: 66 Year
  Weight: 78 kg

DRUGS (4)
  1. SILYMARIN TABLET [Concomitant]
     Indication: PRODUCT USED FOR UNKNOWN INDICATION
     Dosage: UNK, SUGAR?COATED TABLET
     Route: 048
     Dates: start: 20050118, end: 20090227
  2. HEPSERA [Suspect]
     Active Substance: ADEFOVIR DIPIVOXIL
     Indication: PRODUCT USED FOR UNKNOWN INDICATION
     Dosage: 10 MG
     Route: 048
     Dates: start: 20060417, end: 20090227
  3. ZEFFIX [Suspect]
     Active Substance: LAMIVUDINE
     Indication: PRODUCT USED FOR UNKNOWN INDICATION
     Dosage: 100 MG
     Route: 048
     Dates: start: 20060417, end: 20090227
  4. URSODEOXYCHOLIC ACID TABLET [Concomitant]
     Indication: PRODUCT USED FOR UNKNOWN INDICATION
     Dosage: UNK
     Route: 048
     Dates: start: 20060315, end: 20090227

REACTIONS (1)
  - Benign hepatic neoplasm [Recovered/Resolved]

NARRATIVE: CASE EVENT DATE: 20081127
